FAERS Safety Report 5265895-0 (Version None)
Quarter: 2007Q1

REPORT INFORMATION
  Report Type: 
  Country: None (occurrence: None)
  Receive Date: 20070315
  Receipt Date: 20070307
  Transmission Date: 20070707
  Serious: Yes (Death)
  Sender: FDA-Public Use
  Company Number: US-BAYER-200710740BCC

PATIENT
  Sex: Female

DRUGS (1)
  1. ALKA SELTZER PLUS [Suspect]
     Indication: NASOPHARYNGITIS
     Route: 048

REACTIONS (1)
  - HAEMORRHAGIC STROKE [None]
